FAERS Safety Report 6554328-X (Version None)
Quarter: 2010Q1

REPORT INFORMATION
  Report Type: 
  Country: None (occurrence: None)
  Receive Date: 20100127
  Receipt Date: 20100125
  Transmission Date: 20100710
  Serious: Yes (Other)
  Sender: FDA-Public Use
  Company Number: A0839816A

PATIENT
  Age: 81 Year
  Sex: Female

DRUGS (1)
  1. ADVAIR [Suspect]
     Indication: DRUG USE FOR UNKNOWN INDICATION
     Route: 055

REACTIONS (2)
  - CANDIDIASIS [None]
  - STOMATITIS [None]
